FAERS Safety Report 23217459 (Version 1)
Quarter: 2023Q4

REPORT INFORMATION
  Report Type: Spontaneous
  Country: US (occurrence: None)
  Receive Date: 20231121
  Receipt Date: 20231121
  Transmission Date: 20240109
  Serious: Yes (Hospitalization, Disabling)
  Sender: FDA-Public Use
  Company Number: None

PATIENT
  Age: 54 Year
  Sex: Female
  Weight: 63 kg

DRUGS (3)
  1. REPATHA [Suspect]
     Active Substance: EVOLOCUMAB
     Indication: Blood cholesterol increased
     Dosage: OTHER QUANTITY : 1 DROP(S);?OTHER FREQUENCY : 1 EVERY OTHER WEEK;?
     Route: 030
  2. REPATHA [Concomitant]
     Active Substance: EVOLOCUMAB
  3. VITAMIN D3 [Concomitant]
     Active Substance: CHOLECALCIFEROL

REACTIONS (11)
  - Paraesthesia [None]
  - Pain in extremity [None]
  - Musculoskeletal disorder [None]
  - Atrophy [None]
  - Injection site pain [None]
  - Insomnia [None]
  - Loss of personal independence in daily activities [None]
  - Atrial fibrillation [None]
  - Paraesthesia [None]
  - Blood pressure increased [None]
  - Neuropathy peripheral [None]

NARRATIVE: CASE EVENT DATE: 20230723
